FAERS Safety Report 4960569-5 (Version None)
Quarter: 2006Q1

REPORT INFORMATION
  Report Type: 
  Country: None (occurrence: None)
  Receive Date: 20060331
  Receipt Date: 20060331
  Transmission Date: 20060701
  Serious: Yes (Other)
  Sender: FDA-Public Use
  Company Number: None

PATIENT
  Sex: Male
  Weight: 72.5755 kg

DRUGS (9)
  1. IRESSA [Suspect]
     Indication: RENAL CELL CARCINOMA STAGE UNSPECIFIED
     Dosage: 250 MG DAILY PO
     Route: 048
     Dates: start: 20060130, end: 20060306
  2. PEGYLATED INTERFERON ALFA 2 B [Suspect]
     Indication: RENAL CELL CARCINOMA STAGE UNSPECIFIED
     Dosage: 6.0 UG/KG WEEKLY SQ
     Route: 058
     Dates: start: 20060130, end: 20060306
  3. COUMADIN [Concomitant]
  4. K-DUR 10 [Concomitant]
  5. PEPCID [Concomitant]
  6. DIGOXIN [Concomitant]
  7. CALAN [Concomitant]
  8. AMITRIPTYLINE HCL [Concomitant]
  9. MAXZIDE [Concomitant]

REACTIONS (6)
  - ANOREXIA [None]
  - DEHYDRATION [None]
  - FATIGUE [None]
  - INTERNATIONAL NORMALISED RATIO INCREASED [None]
  - NAUSEA [None]
  - ORAL INTAKE REDUCED [None]
